FAERS Safety Report 12968344 (Version 1)
Quarter: 2016Q4

REPORT INFORMATION
  Report Type: Spontaneous
  Country: US (occurrence: US)
  Receive Date: 20161121
  Receipt Date: 20161121
  Transmission Date: 20170207
  Serious: No
  Sender: FDA-Public Use
  Company Number: None

PATIENT
  Age: 55 Year
  Sex: Male

DRUGS (1)
  1. NEXAVAR [Suspect]
     Active Substance: SORAFENIB
     Indication: ILL-DEFINED DISORDER
     Route: 048
     Dates: start: 20160810

REACTIONS (1)
  - Myalgia [None]

NARRATIVE: CASE EVENT DATE: 20161114
